FAERS Safety Report 15317154 (Version 2)
Quarter: 2018Q3

REPORT INFORMATION
  Report Type: Spontaneous
  Country: FR (occurrence: FR)
  Receive Date: 20180824
  Receipt Date: 20180911
  Transmission Date: 20181010
  Serious: Yes (Hospitalization)
  Sender: FDA-Public Use
  Company Number: FR-009507513-1808FRA007477

PATIENT
  Age: 56 Year
  Sex: Female
  Weight: 43 kg

DRUGS (4)
  1. SEEBRI BREEZHALER [Concomitant]
     Active Substance: GLYCOPYRROLATE
     Route: 055
  2. NICOPATCH [Concomitant]
     Active Substance: NICOTINE
     Route: 062
     Dates: start: 201806
  3. ONBREZ [Concomitant]
     Active Substance: INDACATEROL
     Route: 055
  4. KEYTRUDA [Suspect]
     Active Substance: PEMBROLIZUMAB
     Indication: BRONCHIAL CARCINOMA
     Dosage: IN TOTAL
     Route: 042
     Dates: start: 20180718, end: 20180718

REACTIONS (1)
  - Seizure [Recovered/Resolved]

NARRATIVE: CASE EVENT DATE: 20180721
